FAERS Safety Report 9914621 (Version 1)
Quarter: 2014Q1

REPORT INFORMATION
  Report Type: Spontaneous
  Country: FR (occurrence: FR)
  Receive Date: 20140220
  Receipt Date: 20140220
  Transmission Date: 20141002
  Serious: Yes (Other)
  Sender: FDA-Public Use
  Company Number: FR-009507513-1401FRA012764

PATIENT
  Sex: Female

DRUGS (4)
  1. VICTRELIS [Suspect]
     Dosage: UNK
     Route: 065
  2. VIRAFERONPEG [Suspect]
     Route: 065
  3. REBETOL [Suspect]
     Route: 065
  4. LEVOTHYROX [Concomitant]
     Indication: HYPOTHYROIDISM
     Dosage: 125 MICROGRAM, UNK
     Route: 048
     Dates: start: 2011

REACTIONS (3)
  - Thyroidectomy [Unknown]
  - Hypothyroidism [Unknown]
  - Blood thyroid stimulating hormone increased [Unknown]
